FAERS Safety Report 11048555 (Version 1)
Quarter: 2015Q2

REPORT INFORMATION
  Report Type: Report from Study
  Country: US (occurrence: US)
  Receive Date: 20150420
  Receipt Date: 20150420
  Transmission Date: 20150821
  Serious: Yes (Other)
  Sender: FDA-Public Use
  Company Number: PHEH2015US003953

PATIENT
  Age: 55 Year
  Sex: Female

DRUGS (2)
  1. CLOZARIL [Suspect]
     Active Substance: CLOZAPINE
     Indication: SCHIZOPHRENIA
     Dosage: 25 MG, DAILY AT NIGHT
     Route: 048
  2. ZOLOFT [Concomitant]
     Active Substance: SERTRALINE HYDROCHLORIDE
     Indication: DEPRESSION
     Dosage: 100 MG, QHS
     Route: 048
     Dates: start: 2003

REACTIONS (17)
  - Haematocrit decreased [Recovered/Resolved]
  - White blood cell count decreased [Recovered/Resolved]
  - Granulocyte count increased [Recovered/Resolved]
  - Monocyte percentage increased [Unknown]
  - Neutrophil percentage increased [Recovered/Resolved]
  - Haemoglobin decreased [Unknown]
  - Granulocyte count increased [Unknown]
  - Haemoglobin decreased [Recovered/Resolved]
  - Neutrophil percentage increased [Unknown]
  - Infection [Unknown]
  - Lymphocyte percentage decreased [Not Recovered/Not Resolved]
  - Pulmonary embolism [Unknown]
  - Band neutrophil percentage decreased [Unknown]
  - Red cell distribution width increased [Not Recovered/Not Resolved]
  - Band neutrophil percentage decreased [Recovered/Resolved]
  - White blood cell count decreased [Not Recovered/Not Resolved]
  - White blood cell count decreased [Recovered/Resolved]

NARRATIVE: CASE EVENT DATE: 20150224
